FAERS Safety Report 25647082 (Version 1)
Quarter: 2025Q3

REPORT INFORMATION
  Report Type: Spontaneous
  Country: US (occurrence: US)
  Receive Date: 20250806
  Receipt Date: 20250806
  Transmission Date: 20251020
  Serious: No
  Sender: GLAXOSMITHKLINE
  Company Number: US-GSK-US2025087707

PATIENT
  Age: 71 Year
  Sex: Male

DRUGS (7)
  1. TRELEGY ELLIPTA [Suspect]
     Active Substance: FLUTICASONE FUROATE\UMECLIDINIUM BROMIDE\VILANTEROL TRIFENATATE
     Indication: Chronic obstructive pulmonary disease
     Dosage: 1 PUFF(S), QD
     Dates: start: 2023
  2. FUROSEMIDE [Concomitant]
     Active Substance: FUROSEMIDE
     Indication: Cardiac failure congestive
  3. METOPROLOL [Concomitant]
     Active Substance: METOPROLOL
     Indication: Cardiac failure congestive
     Dosage: 2 MG, QD
  4. VALSARTAN [Concomitant]
     Active Substance: VALSARTAN
     Indication: Cardiac failure congestive
     Dosage: 80 MG, QD
  5. FLOMAX [Concomitant]
     Active Substance: TAMSULOSIN HYDROCHLORIDE
     Indication: Benign prostatic hyperplasia
  6. LUTEIN [Concomitant]
     Active Substance: LUTEIN
     Indication: Eye disorder
     Dosage: 20 MG, QD
  7. HERBALS\TURMERIC [Concomitant]
     Active Substance: HERBALS\TURMERIC
     Indication: Supplementation therapy

REACTIONS (3)
  - Increased bronchial secretion [Not Recovered/Not Resolved]
  - Hypotension [Unknown]
  - Product complaint [Unknown]

NARRATIVE: CASE EVENT DATE: 20250706
